FAERS Safety Report 9653363 (Version 1)
Quarter: 2013Q4

REPORT INFORMATION
  Report Type: Spontaneous
  Country: US (occurrence: None)
  Receive Date: 20131028
  Receipt Date: 20131028
  Transmission Date: 20140711
  Serious: Yes (Other)
  Sender: FDA-Public Use
  Company Number: CIO13063920

PATIENT
  Sex: Male

DRUGS (1)
  1. NYQUIL [Suspect]
     Route: 048
     Dates: start: 20131015, end: 20131015

REACTIONS (3)
  - Dyspnoea [None]
  - Lung disorder [None]
  - Hypersensitivity [None]
